FAERS Safety Report 8306416-5 (Version None)
Quarter: 2012Q2

REPORT INFORMATION
  Report Type: 
  Country: None (occurrence: None)
  Receive Date: 20120423
  Receipt Date: 20120409
  Transmission Date: 20120825
  Serious: Yes (Hospitalization, Other)
  Sender: FDA-Public Use
  Company Number: US-MYLANLABS-2009AL004807

PATIENT
  Age: 74 Year
  Sex: Male
  Weight: 77.11 kg

DRUGS (33)
  1. LEVOFLOXACIN [Concomitant]
  2. PREDNISONE TAB [Concomitant]
  3. THEOPHYLLINE [Concomitant]
  4. TOPROL-XL [Concomitant]
  5. LASIX [Concomitant]
  6. ASPIRIN [Concomitant]
  7. KETOCONAZOLE [Concomitant]
  8. PRILOSEC [Concomitant]
  9. GLUCOPHAGE [Concomitant]
  10. METFORMIN HCL [Concomitant]
  11. COMBIVENT [Concomitant]
  12. AMIODARONE HCL [Concomitant]
  13. KLOR-CON [Concomitant]
  14. ERYTHROMYCIN [Concomitant]
  15. METOPROLOL SUCCINATE EXTENDED-RELEASE TABLETS USP [Concomitant]
  16. OMEPRAZOLE [Concomitant]
  17. ALBUTEROL [Concomitant]
  18. CEPHALEXIN [Concomitant]
  19. NITROGLYCERIN [Concomitant]
  20. METOPROLOL TARTRATE [Concomitant]
  21. SEREVENT [Concomitant]
  22. AZITHROMYCIN [Concomitant]
  23. ROCEPHIN [Concomitant]
  24. KEFLEX [Concomitant]
  25. LEVAQUIN [Concomitant]
  26. CEFTRIAXONE [Concomitant]
  27. ELAVIL [Concomitant]
  28. THEO-DUR [Concomitant]
  29. DIGOXIN [Suspect]
     Route: 048
  30. AMITRIPTYLINE HCL [Concomitant]
  31. LIPITOR [Concomitant]
  32. ADVAIR DISKUS 100/50 [Concomitant]
  33. AZITHROMYCIN [Concomitant]

REACTIONS (51)
  - ILEUS [None]
  - OSTEONECROSIS [None]
  - BRONCHITIS [None]
  - SINUSITIS [None]
  - HYPOTENSION [None]
  - ATRIAL FIBRILLATION [None]
  - CHRONIC OBSTRUCTIVE PULMONARY DISEASE [None]
  - ABDOMINAL PAIN [None]
  - BREATH SOUNDS ABNORMAL [None]
  - CAROTID ARTERY STENOSIS [None]
  - CONSTIPATION [None]
  - DIRECTIONAL DOPPLER FLOW TESTS ABNORMAL [None]
  - DYSPNOEA EXERTIONAL [None]
  - EMPHYSEMA [None]
  - MENTAL STATUS CHANGES [None]
  - ASTHENIA [None]
  - ATROPHY [None]
  - CARDIOMEGALY [None]
  - DYSURIA [None]
  - LUNG INFILTRATION [None]
  - OSTEOARTHRITIS [None]
  - AORTIC ARTERIOSCLEROSIS [None]
  - CHEST X-RAY ABNORMAL [None]
  - CONDITION AGGRAVATED [None]
  - DYSPEPSIA [None]
  - ECHOCARDIOGRAM ABNORMAL [None]
  - FAECALOMA [None]
  - FATIGUE [None]
  - HOSPICE CARE [None]
  - HEART RATE INCREASED [None]
  - SYNCOPE [None]
  - COMPUTERISED TOMOGRAM ABNORMAL [None]
  - OEDEMA PERIPHERAL [None]
  - ORTHOSTATIC HYPOTENSION [None]
  - RHONCHI [None]
  - URINARY TRACT INFECTION [None]
  - CHEST PAIN [None]
  - TYPE 2 DIABETES MELLITUS [None]
  - RALES [None]
  - SICK SINUS SYNDROME [None]
  - ABDOMINAL DISTENSION [None]
  - BREAST PAIN [None]
  - DYSPNOEA [None]
  - PULMONARY FIBROSIS [None]
  - SEBORRHOEIC DERMATITIS [None]
  - BRADYCARDIA [None]
  - COUGH [None]
  - CARDIAC PACEMAKER INSERTION [None]
  - ATELECTASIS [None]
  - ARTHRITIS [None]
  - WHEEZING [None]
